FAERS Safety Report 9875944 (Version 1)
Quarter: 2013Q2

REPORT INFORMATION
  Report Type: Spontaneous
  Country: US (occurrence: None)
  Receive Date: 20121130
  Receipt Date: 20121130
  Transmission Date: 20140414
  Serious: Yes (Other)
  Sender: FDA-Public Use
  Company Number: 2011BH003912

PATIENT
  Sex: Female

DRUGS (7)
  1. SUPRANE [Suspect]
     Indication: HYSTERECTOMY
  2. TORADOL (KETOROLAC TROMETHAMINE) [Suspect]
     Indication: HYSTERECTOMY
  3. ANCEF [Suspect]
     Indication: PROPHYLAXIS
  4. ONDANSETRON (ONDANSETRON) [Suspect]
     Indication: PROPHYLAXIS OF NAUSEA AND VOMITING
  5. DECADRON [Suspect]
     Indication: PROPHYLAXIS OF NAUSEA AND VOMITING
  6. NARCOTICS [Suspect]
     Indication: PRODUCT USED FOR UNKNOWN INDICATION
  7. ACETAMINOPHEN (PARACETAMOL) [Suspect]
     Indication: PRODUCT USED FOR UNKNOWN INDICATION

REACTIONS (1)
  - Hepatitis [None]
